FAERS Safety Report 8024189-0 (Version None)
Quarter: 2012Q1

REPORT INFORMATION
  Report Type: 
  Country: None (occurrence: None)
  Receive Date: 20120105
  Receipt Date: 20111228
  Transmission Date: 20120608
  Serious: Yes (Hospitalization, Other)
  Sender: FDA-Public Use
  Company Number: PHFR2011GB04776

PATIENT
  Sex: Female

DRUGS (12)
  1. CLOZARIL [Suspect]
     Indication: SCHIZOPHRENIA
     Route: 048
     Dates: start: 20000704
  2. CLOZARIL [Suspect]
     Dosage: 450 MG/DAY
     Route: 048
     Dates: start: 20040501, end: 20110811
  3. AMISULPRIDE [Suspect]
     Dosage: 200 MG
     Route: 048
     Dates: start: 20110816, end: 20110829
  4. LAMOTRIGINE [Concomitant]
     Dosage: 75 MG/DAY
     Route: 048
  5. SENNA [Concomitant]
     Dosage: 15 MG/DAY
     Route: 048
  6. CALCICHEW-D3 [Concomitant]
     Route: 048
  7. AMISULPRIDE [Suspect]
     Dosage: 100 MG/DAY
     Route: 048
  8. SIMVASTATIN [Concomitant]
     Dosage: 40 MG/DAY
     Route: 048
  9. ZOPICLONE [Concomitant]
     Indication: INSOMNIA
     Dosage: 3.75 MG/DAY
     Route: 048
  10. OLANZAPINE [Concomitant]
     Dosage: 15 MG, UNK
     Route: 048
     Dates: start: 20110905
  11. QUETIAPINE [Concomitant]
     Route: 048
     Dates: start: 20111014
  12. LAMOTRIGINE [Concomitant]
     Dosage: 150 MG
     Route: 048
     Dates: start: 20030401

REACTIONS (6)
  - PLATELET DISORDER [None]
  - NEUTROPHIL COUNT DECREASED [None]
  - BLOOD CREATINE PHOSPHOKINASE INCREASED [None]
  - NEUTROPENIA [None]
  - NEUROLEPTIC MALIGNANT SYNDROME [None]
  - WHITE BLOOD CELL COUNT DECREASED [None]
